FAERS Safety Report 9146904 (Version 2)
Quarter: 2013Q2

REPORT INFORMATION
  Report Type: Report from Study
  Country: US (occurrence: US)
  Receive Date: 20130307
  Receipt Date: 20130409
  Transmission Date: 20140414
  Serious: Yes (Hospitalization)
  Sender: FDA-Public Use
  Company Number: US-ROCHE-1197998

PATIENT
  Age: 70 Year
  Sex: Female
  Weight: 41.77 kg

DRUGS (2)
  1. XOLAIR [Suspect]
     Indication: ASTHMA
     Route: 058
     Dates: start: 20040201
  2. PREDNISONE [Concomitant]
     Route: 048

REACTIONS (6)
  - Asthma [Unknown]
  - Asthenia [Recovered/Resolved]
  - Thrombosis [Unknown]
  - Haemorrhage [Recovered/Resolved]
  - Wound [Recovered/Resolved]
  - Dyspnoea [Not Recovered/Not Resolved]
